FAERS Safety Report 19518069 (Version 2)
Quarter: 2021Q3

REPORT INFORMATION
  Report Type: Other
  Country: US (occurrence: US)
  Receive Date: 20210712
  Receipt Date: 20210713
  Transmission Date: 20211014
  Serious: Yes (Hospitalization)
  Sender: FDA-Public Use
  Company Number: US-ROCHE-2857750

PATIENT
  Age: 62 Year
  Sex: Male
  Weight: 95.7 kg

DRUGS (5)
  1. LYRICA [Concomitant]
     Active Substance: PREGABALIN
     Indication: NEURALGIA
     Dosage: ONGOING NO
     Route: 048
     Dates: end: 20210524
  2. OCREVUS [Suspect]
     Active Substance: OCRELIZUMAB
     Indication: RELAPSING-REMITTING MULTIPLE SCLEROSIS
     Dosage: ONGOING NO?DATE OF TREATMENT: 19/OCT/2020, 19/NOV/2020
     Route: 042
     Dates: start: 20201019
  3. LEXAPRO [Concomitant]
     Active Substance: ESCITALOPRAM OXALATE
     Indication: ANXIETY
     Dosage: ONGOING NO
     Route: 048
     Dates: end: 20210524
  4. OCREVUS [Suspect]
     Active Substance: OCRELIZUMAB
     Indication: PRIMARY PROGRESSIVE MULTIPLE SCLEROSIS
     Dosage: ONGOING UNKNOWN
     Route: 042
     Dates: start: 20210519
  5. OCREVUS [Suspect]
     Active Substance: OCRELIZUMAB
     Route: 042
     Dates: start: 202010

REACTIONS (8)
  - Renal injury [Recovering/Resolving]
  - Encephalopathy [Unknown]
  - Confusional state [Recovering/Resolving]
  - Urinary incontinence [Recovered/Resolved]
  - Acute kidney injury [Unknown]
  - Fall [Unknown]
  - Anal incontinence [Recovered/Resolved]
  - Fall [Unknown]

NARRATIVE: CASE EVENT DATE: 20210524
